FAERS Safety Report 6973343-5 (Version None)
Quarter: 2010Q3

REPORT INFORMATION
  Report Type: 
  Country: None (occurrence: None)
  Receive Date: 20100909
  Receipt Date: 20100831
  Transmission Date: 20110219
  Serious: Yes (Hospitalization, Other)
  Sender: FDA-Public Use
  Company Number: JP-JNJFOC-20100510225

PATIENT
  Sex: Female
  Weight: 48 kg

DRUGS (11)
  1. FLORID ORAL GEL [Suspect]
     Route: 049
  2. FLORID ORAL GEL [Suspect]
     Indication: ORAL CANDIDIASIS
     Route: 049
  3. WARFARIN [Interacting]
     Indication: ATRIAL FIBRILLATION
     Route: 048
  4. WARFARIN [Interacting]
     Route: 048
  5. RENIVACE [Concomitant]
     Indication: CARDIAC FAILURE
     Route: 048
  6. ARTIST [Concomitant]
     Indication: CARDIAC FAILURE
     Route: 048
  7. VASOLAN [Concomitant]
     Indication: ATRIAL FIBRILLATION
     Dosage: 120MG, 40MG
     Route: 048
  8. LUPRAC [Concomitant]
     Indication: CARDIAC FAILURE
     Route: 048
  9. LASIX [Concomitant]
     Indication: CARDIAC FAILURE
     Route: 048
  10. ALDACTONE [Concomitant]
     Indication: CARDIAC FAILURE
     Route: 048
  11. MYSLEE [Concomitant]
     Indication: INSOMNIA
     Route: 048

REACTIONS (8)
  - ANAEMIA [None]
  - DRUG INTERACTION [None]
  - EPISTAXIS [None]
  - HAEMOGLOBIN DECREASED [None]
  - HAEMOPTYSIS [None]
  - HAEMORRHAGE [None]
  - INTERNATIONAL NORMALISED RATIO INCREASED [None]
  - MALAISE [None]
